FAERS Safety Report 8862228 (Version 1)
Quarter: 2012Q4

REPORT INFORMATION
  Report Type: 
  Country: FR (occurrence: FR)
  Receive Date: 20121026
  Receipt Date: 20121026
  Transmission Date: 20130627
  Serious: Yes (Other)
  Sender: FDA-Public Use
  Company Number: FR-SANOFI-AVENTIS-2012SA078011

PATIENT
  Age: 61 Year
  Sex: Male

DRUGS (2)
  1. DANAZOL [Suspect]
     Indication: ANGIOEDEMA
     Route: 065
  2. PREDNISONE [Suspect]
     Indication: ANGIOEDEMA
     Route: 065

REACTIONS (3)
  - Ischaemic stroke [Unknown]
  - Hepatocellular injury [Unknown]
  - Drug ineffective [Unknown]
